FAERS Safety Report 5209718-4 (Version None)
Quarter: 2007Q1

REPORT INFORMATION
  Report Type: 
  Country: None (occurrence: None)
  Receive Date: 20070116
  Receipt Date: 20070108
  Transmission Date: 20070707
  Serious: Yes (Hospitalization)
  Sender: FDA-Public Use
  Company Number: FR-BOEHRINGER INGELHEIM PHARMACEUTICALS, INC.-2007-FF-00021FF

PATIENT
  Age: 46 Year
  Sex: Male

DRUGS (5)
  1. VIRAMUNE [Suspect]
     Indication: HIV INFECTION
     Route: 048
  2. BACTRIM [Concomitant]
     Route: 048
     Dates: end: 20060801
  3. COMBIVIR [Concomitant]
     Indication: HIV INFECTION
     Route: 048
  4. PEGASYS [Concomitant]
     Indication: HEPATITIS VIRAL
     Route: 058
     Dates: end: 20060801
  5. COPEGUS [Concomitant]
     Indication: HEPATITIS VIRAL
     Route: 048
     Dates: end: 20060801

REACTIONS (3)
  - ANAEMIA [None]
  - LEUKOPENIA [None]
  - NEUTROPENIA [None]
